FAERS Safety Report 16791627 (Version 3)
Quarter: 2021Q1

REPORT INFORMATION
  Report Type: Report from Study
  Country: US (occurrence: US)
  Receive Date: 20190910
  Receipt Date: 20210219
  Transmission Date: 20210419
  Serious: Yes (Death)
  Sender: FDA-Public Use
  Company Number: US-PFIZER INC-2019385718

PATIENT
  Age: 64 Year
  Sex: Male
  Weight: 66.2 kg

DRUGS (2)
  1. AVELUMAB [Suspect]
     Active Substance: AVELUMAB
     Indication: NEOPLASM
     Dosage: 800 MG, CYCLIC (EVERY 2 WEEKS)
     Route: 042
     Dates: start: 20180716, end: 20180910
  2. TALAZOPARIB. [Suspect]
     Active Substance: TALAZOPARIB
     Indication: NEOPLASM
     Dosage: 0.75 MG, QD
     Route: 048
     Dates: start: 20180716, end: 20180910

REACTIONS (1)
  - Death [Fatal]

NARRATIVE: CASE EVENT DATE: 20181101
